FAERS Safety Report 17568498 (Version 1)
Quarter: 2020Q1

REPORT INFORMATION
  Report Type: Spontaneous
  Country: CH (occurrence: CH)
  Receive Date: 20200320
  Receipt Date: 20200320
  Transmission Date: 20200409
  Serious: Yes (Hospitalization)
  Sender: FDA-Public Use
  Company Number: CH-LUNDBECK-DKLU3014254

PATIENT
  Age: 68 Year
  Sex: Female
  Weight: 67 kg

DRUGS (16)
  1. URBANYL [Suspect]
     Active Substance: CLOBAZAM
     Indication: SEIZURE PROPHYLAXIS
     Route: 065
     Dates: start: 20191129, end: 20191223
  2. OXCARBAZEPINE. [Suspect]
     Active Substance: OXCARBAZEPINE
     Indication: SEIZURE PROPHYLAXIS
     Route: 065
     Dates: start: 20191127, end: 20191205
  3. OXCARBAZEPINE. [Suspect]
     Active Substance: OXCARBAZEPINE
     Route: 065
     Dates: start: 20191205, end: 20191210
  4. VALPROATE SODIUM. [Suspect]
     Active Substance: VALPROATE SODIUM
     Indication: SEIZURE PROPHYLAXIS
     Route: 065
     Dates: start: 20191119, end: 20191125
  5. VALPROATE SODIUM. [Suspect]
     Active Substance: VALPROATE SODIUM
     Route: 065
     Dates: start: 20191126, end: 20191127
  6. BRIVIACT [Suspect]
     Active Substance: BRIVARACETAM
     Indication: SEIZURE PROPHYLAXIS
     Route: 065
     Dates: start: 20191126
  7. PANTOZOL [Suspect]
     Active Substance: PANTOPRAZOLE SODIUM
     Indication: SEIZURE PROPHYLAXIS
     Route: 065
     Dates: start: 20191117
  8. VALPROATE SODIUM. [Suspect]
     Active Substance: VALPROATE SODIUM
     Route: 065
     Dates: start: 20191205, end: 20191209
  9. VALPROATE SODIUM. [Suspect]
     Active Substance: VALPROATE SODIUM
     Route: 065
     Dates: start: 20191212
  10. LACOSAMIDE. [Suspect]
     Active Substance: LACOSAMIDE
     Route: 065
     Dates: start: 20191130
  11. LACOSAMIDE. [Suspect]
     Active Substance: LACOSAMIDE
     Route: 065
     Dates: start: 20191120, end: 20191129
  12. VALPROATE SODIUM. [Suspect]
     Active Substance: VALPROATE SODIUM
     Route: 065
     Dates: start: 20191209, end: 20191211
  13. LACOSAMIDE. [Suspect]
     Active Substance: LACOSAMIDE
     Indication: SEIZURE PROPHYLAXIS
     Route: 065
     Dates: start: 20191118, end: 20191119
  14. LEVETIRACETAM. [Suspect]
     Active Substance: LEVETIRACETAM
     Indication: SEIZURE PROPHYLAXIS
     Route: 065
     Dates: start: 20191117, end: 20191125
  15. OXCARBAZEPINE. [Suspect]
     Active Substance: OXCARBAZEPINE
     Route: 065
     Dates: start: 20191210, end: 20191213
  16. VALPROATE SODIUM. [Suspect]
     Active Substance: VALPROATE SODIUM
     Route: 065
     Dates: start: 20191128, end: 20191205

REACTIONS (2)
  - Transaminases increased [Recovered/Resolved]
  - Ammonia increased [Recovered/Resolved]

NARRATIVE: CASE EVENT DATE: 20191202
